FAERS Safety Report 20506882 (Version 1)
Quarter: 2022Q1

REPORT INFORMATION
  Report Type: Spontaneous
  Country: US (occurrence: US)
  Receive Date: 20220223
  Receipt Date: 20220223
  Transmission Date: 20220424
  Serious: No
  Sender: FDA-Public Use
  Company Number: US-PFIZER INC-202101648713

PATIENT
  Age: 70 Year
  Sex: Male

DRUGS (1)
  1. XELJANZ XR [Suspect]
     Active Substance: TOFACITINIB CITRATE
     Indication: Rheumatoid arthritis
     Dosage: 11 MG, 1X/DAY
     Route: 048
     Dates: start: 20211009, end: 20211110

REACTIONS (4)
  - Abdominal discomfort [Unknown]
  - Intentional dose omission [Unknown]
  - Memory impairment [Unknown]
  - Discouragement [Unknown]

NARRATIVE: CASE EVENT DATE: 20211110
